FAERS Safety Report 8047621-5 (Version None)
Quarter: 2012Q1

REPORT INFORMATION
  Report Type: 
  Country: None (occurrence: None)
  Receive Date: 20120116
  Receipt Date: 20120110
  Transmission Date: 20120608
  Serious: Yes (Hospitalization)
  Sender: FDA-Public Use
  Company Number: US-GLAXOSMITHKLINE-B0763053A

PATIENT
  Age: 63 Year
  Sex: Male

DRUGS (1)
  1. AVANDARYL [Suspect]
     Indication: DIABETES MELLITUS
     Route: 048
     Dates: start: 20060410, end: 20070701

REACTIONS (1)
  - CEREBROVASCULAR ACCIDENT [None]
